FAERS Safety Report 5858765-8 (Version None)
Quarter: 2008Q3

REPORT INFORMATION
  Report Type: 
  Country: None (occurrence: None)
  Receive Date: 20080818
  Receipt Date: 20080513
  Transmission Date: 20090109
  Serious: No
  Sender: FDA-Public Use
  Company Number: WAES 0804USA02553

PATIENT
  Age: 65 Year
  Sex: Male
  Weight: 100.6985 kg

DRUGS (7)
  1. JANUVIA [Suspect]
     Indication: TYPE 2 DIABETES MELLITUS
     Dosage: 50 MG/DAILY/PO
     Route: 048
     Dates: start: 20070927, end: 20080410
  2. ACTOS [Concomitant]
  3. HYZAAR [Concomitant]
  4. LEVOXYL [Concomitant]
  5. TOPROL-XL [Concomitant]
  6. GLIPIZIDE [Concomitant]
  7. INFLUENZA VIRUS VACCINE [Concomitant]

REACTIONS (6)
  - BILIRUBIN CONJUGATED INCREASED [None]
  - BLOOD CREATININE INCREASED [None]
  - BLOOD UREA DECREASED [None]
  - EYE DISORDER [None]
  - GLOMERULAR FILTRATION RATE DECREASED [None]
  - PROTEIN TOTAL DECREASED [None]
